FAERS Safety Report 7238517-7 (Version None)
Quarter: 2011Q1

REPORT INFORMATION
  Report Type: 
  Country: None (occurrence: None)
  Receive Date: 20110121
  Receipt Date: 20110117
  Transmission Date: 20110831
  Serious: No
  Sender: FDA-Public Use
  Company Number: KR-JNJFOC-20110104568

PATIENT
  Age: 60 Year
  Sex: Male

DRUGS (1)
  1. DURAGESIC-100 [Suspect]
     Indication: BACK PAIN
     Route: 062

REACTIONS (4)
  - SKIN DISORDER [None]
  - DRUG ADMINISTERED AT INAPPROPRIATE SITE [None]
  - RASH [None]
  - PRURITUS [None]
